FAERS Safety Report 8007922-3 (Version None)
Quarter: 2011Q4

REPORT INFORMATION
  Report Type: 
  Country: None (occurrence: None)
  Receive Date: 20111221
  Receipt Date: 20111207
  Transmission Date: 20120403
  Serious: Yes (Other)
  Sender: FDA-Public Use
  Company Number: 2011P1009465

PATIENT
  Age: 29 Year
  Sex: Female

DRUGS (2)
  1. SOLODYN [Suspect]
     Indication: ACNE
     Dosage: 115 MG;QD;PO
     Route: 048
     Dates: start: 20110721, end: 20111013
  2. ORTHO TRI-CYCLEN [Concomitant]

REACTIONS (2)
  - DYSPNOEA [None]
  - EXTRASYSTOLES [None]
